FAERS Safety Report 9305859 (Version 3)
Quarter: 2013Q3

REPORT INFORMATION
  Report Type: Spontaneous
  Country: US (occurrence: US)
  Receive Date: 20130523
  Receipt Date: 20130820
  Transmission Date: 20140515
  Serious: No
  Sender: FDA-Public Use
  Company Number: US-PFIZER INC-2013157345

PATIENT
  Age: 72 Year
  Sex: Female

DRUGS (2)
  1. XALATAN [Suspect]
     Dosage: UNK, DROP AT BEDTIME
  2. SYSTANE [Concomitant]
     Dosage: UNK

REACTIONS (3)
  - Cardiac disorder [Unknown]
  - Anxiety [Unknown]
  - Feeling jittery [Unknown]
